FAERS Safety Report 7526838-X (Version None)
Quarter: 2011Q2

REPORT INFORMATION
  Report Type: 
  Country: None (occurrence: None)
  Receive Date: 20110606
  Receipt Date: 20110531
  Transmission Date: 20111010
  Serious: Yes (Hospitalization)
  Sender: FDA-Public Use
  Company Number: US-AMGEN-USACT2011028200

PATIENT
  Age: 62 Year
  Sex: Female
  Weight: 67.6 kg

DRUGS (3)
  1. DOCETAXEL [Concomitant]
  2. CISPLATIN [Concomitant]
  3. PANITUMUMAB [Suspect]
     Indication: OESOPHAGEAL ADENOCARCINOMA

REACTIONS (1)
  - CHYLOTHORAX [None]
